FAERS Safety Report 25863558 (Version 1)
Quarter: 2025Q3

REPORT INFORMATION
  Report Type: Spontaneous
  Country: EU (occurrence: EU)
  Receive Date: 20250930
  Receipt Date: 20250930
  Transmission Date: 20251021
  Serious: Yes (Hospitalization, Other)
  Sender: BAYER HEALTHCARE PHARMACEUTICALS INC.
  Company Number: EU-BAYER-2025A126619

PATIENT
  Age: 74 Year
  Sex: Male
  Weight: 114 kg

DRUGS (2)
  1. KERENDIA [Suspect]
     Active Substance: FINERENONE
     Indication: Type 2 diabetes mellitus
  2. KERENDIA [Suspect]
     Active Substance: FINERENONE
     Indication: Chronic kidney disease

REACTIONS (8)
  - Infectious pleural effusion [None]
  - Blood glucose increased [None]
  - Blood chloride increased [None]
  - N-terminal prohormone brain natriuretic peptide increased [None]
  - Aspartate aminotransferase increased [None]
  - Alanine aminotransferase increased [None]
  - C-reactive protein increased [None]
  - Weight decreased [None]
